FAERS Safety Report 7260863-1 (Version None)
Quarter: 2011Q1

REPORT INFORMATION
  Report Type: 
  Country: None (occurrence: None)
  Receive Date: 20110130
  Receipt Date: 20101112
  Transmission Date: 20110831
  Serious: No
  Sender: FDA-Public Use
  Company Number: US-ABBOTT-10P-163-0685126-00

PATIENT
  Age: 45 Year
  Sex: Female

DRUGS (13)
  1. HUMIRA [Suspect]
     Indication: CROHN'S DISEASE
     Dates: start: 20100828
  2. LOEGESTROL [Concomitant]
     Indication: CONTRACEPTION
  3. PENTASA [Concomitant]
     Indication: CROHN'S DISEASE
  4. CETALOPRAM [Concomitant]
     Indication: PRODUCT USED FOR UNKNOWN INDICATION
  5. FOLIC ACID [Concomitant]
     Indication: PRODUCT USED FOR UNKNOWN INDICATION
  6. CALCIUM W/D [Concomitant]
     Indication: PRODUCT USED FOR UNKNOWN INDICATION
  7. HYDROCHLOROTHIAZIDE [Concomitant]
     Indication: HYPERTENSION
  8. VITAMIN B-12 [Concomitant]
     Indication: CROHN'S DISEASE
     Dosage: 1CC
  9. ELAVIL [Concomitant]
     Indication: ANXIETY
  10. 6 MP 50 [Concomitant]
     Indication: CROHN'S DISEASE
  11. FLONASE [Concomitant]
     Indication: HYPERSENSITIVITY
     Route: 045
  12. FISH OIL [Concomitant]
     Indication: PRODUCT USED FOR UNKNOWN INDICATION
  13. FLAX OIL [Concomitant]
     Indication: PRODUCT USED FOR UNKNOWN INDICATION

REACTIONS (1)
  - CARDIAC FLUTTER [None]
